FAERS Safety Report 14382070 (Version 2)
Quarter: 2018Q1

REPORT INFORMATION
  Report Type: Report from Study
  Country: US (occurrence: US)
  Receive Date: 20180112
  Receipt Date: 20180123
  Transmission Date: 20180509
  Serious: Yes (Death, Hospitalization)
  Sender: FDA-Public Use
  Company Number: US-BAUSCH-BL-2018-000851

PATIENT
  Sex: Female
  Weight: 123.49 kg

DRUGS (2)
  1. XIFAXAN [Suspect]
     Active Substance: RIFAXIMIN
     Dosage: XIFAXAN WAS GIVEN IN THE HOSPITAL
     Route: 048
  2. XIFAXAN [Suspect]
     Active Substance: RIFAXIMIN
     Indication: HEPATIC ENCEPHALOPATHY
     Route: 048

REACTIONS (4)
  - Hepatic cancer [Fatal]
  - Hospice care [Unknown]
  - Disease complication [Fatal]
  - Hepatic failure [Unknown]
